FAERS Safety Report 4698159-4 (Version None)
Quarter: 2005Q2

REPORT INFORMATION
  Report Type: 
  Country: None (occurrence: None)
  Receive Date: 20050623
  Receipt Date: 20040928
  Transmission Date: 20051028
  Serious: Yes (Other)
  Sender: FDA-Public Use
  Company Number: JP-GLAXOSMITHKLINE-B0347159A

PATIENT
  Age: 53 Year
  Sex: Female
  Weight: 79 kg

DRUGS (11)
  1. PAXIL [Suspect]
     Indication: DEPRESSION
     Dosage: 20MG PER DAY
     Route: 048
     Dates: start: 20040730, end: 20040809
  2. DEPAKENE [Concomitant]
     Indication: MOOD ALTERED
     Dosage: 100MG THREE TIMES PER DAY
     Route: 048
     Dates: start: 20030206, end: 20040809
  3. ROHYPNOL [Concomitant]
     Indication: INSOMNIA
     Dosage: 2MG THREE TIMES PER DAY
     Route: 048
     Dates: start: 20030114, end: 20040809
  4. MYSLEE [Concomitant]
     Indication: INSOMNIA
     Dosage: 10MG PER DAY
     Route: 048
     Dates: start: 20030114, end: 20040809
  5. POLLAKISU [Concomitant]
     Indication: URINARY INCONTINENCE
     Dosage: 2MG TWICE PER DAY
     Route: 048
     Dates: end: 20040809
  6. BLADDERON [Concomitant]
     Indication: URINARY INCONTINENCE
     Dosage: 200MG PER DAY
     Route: 048
     Dates: end: 20040809
  7. SPIROPENT [Concomitant]
     Indication: URINARY INCONTINENCE
     Dosage: 10MCG TWICE PER DAY
     Route: 048
     Dates: end: 20040809
  8. BLOPRESS [Concomitant]
     Indication: DIABETES MELLITUS
     Dosage: 12MG PER DAY
     Route: 048
     Dates: end: 20040809
  9. EUGLUCON [Concomitant]
     Indication: DIABETES MELLITUS
     Dosage: 2.5MG PER DAY
     Route: 048
     Dates: end: 20040809
  10. METFORMIN HCL [Concomitant]
     Indication: DIABETES MELLITUS
     Dosage: 250MG THREE TIMES PER DAY
     Route: 048
     Dates: end: 20040809
  11. MAGMITT [Concomitant]
     Indication: CONSTIPATION
     Dosage: 1.5G PER DAY
     Route: 048
     Dates: start: 20030609, end: 20040809

REACTIONS (11)
  - ALANINE AMINOTRANSFERASE INCREASED [None]
  - ASPARTATE AMINOTRANSFERASE INCREASED [None]
  - BLOOD CREATINE PHOSPHOKINASE INCREASED [None]
  - BLOOD LACTATE DEHYDROGENASE INCREASED [None]
  - C-REACTIVE PROTEIN INCREASED [None]
  - GRAND MAL CONVULSION [None]
  - HYPERHIDROSIS [None]
  - MUSCULOSKELETAL STIFFNESS [None]
  - NEUROLEPTIC MALIGNANT SYNDROME [None]
  - PYREXIA [None]
  - STUPOR [None]
